FAERS Safety Report 15923341 (Version 1)
Quarter: 2019Q1

REPORT INFORMATION
  Report Type: Spontaneous
  Country: US (occurrence: US)
  Receive Date: 20190206
  Receipt Date: 20190206
  Transmission Date: 20190417
  Serious: Yes (Other)
  Sender: FDA-Public Use
  Company Number: None

PATIENT
  Age: 23 Year
  Sex: Female

DRUGS (1)
  1. AJOVY [Suspect]
     Active Substance: FREMANEZUMAB-VFRM
     Indication: MIGRAINE
     Dosage: ?          OTHER FREQUENCY:MONTHLY;?
     Route: 058
     Dates: start: 20181211

REACTIONS (10)
  - Loss of consciousness [None]
  - Constipation [None]
  - Depression [None]
  - Pruritus [None]
  - Suicidal ideation [None]
  - Dizziness [None]
  - Neuralgia [None]
  - Fatigue [None]
  - Insomnia [None]
  - Anxiety [None]
